FAERS Safety Report 15948486 (Version 1)
Quarter: 2019Q1

REPORT INFORMATION
  Report Type: Spontaneous
  Country: US (occurrence: US)
  Receive Date: 20190211
  Receipt Date: 20190211
  Transmission Date: 20190417
  Serious: No
  Sender: FDA-Public Use
  Company Number: US-SA-2019SA038476

PATIENT

DRUGS (6)
  1. ENBREL [Suspect]
     Active Substance: ETANERCEPT
  2. ARAVA [Suspect]
     Active Substance: LEFLUNOMIDE
  3. METHOTREXATE. [Suspect]
     Active Substance: METHOTREXATE
  4. HUMIRA [Suspect]
     Active Substance: ADALIMUMAB
  5. SIMPONI [Suspect]
     Active Substance: GOLIMUMAB
  6. XELJANZ [Concomitant]
     Active Substance: TOFACITINIB CITRATE

REACTIONS (3)
  - Gastrointestinal disorder [Unknown]
  - Drug ineffective [Unknown]
  - Nausea [Unknown]
